FAERS Safety Report 4345201-6 (Version None)
Quarter: 2004Q2

REPORT INFORMATION
  Report Type: 
  Country: None (occurrence: None)
  Receive Date: 20040420
  Receipt Date: 20040407
  Transmission Date: 20050107
  Serious: Yes (Other)
  Sender: FDA-Public Use
  Company Number: 2004019921

PATIENT
  Age: 8 Year
  Sex: Male
  Weight: 25 kg

DRUGS (4)
  1. ZITHROMAX [Suspect]
     Indication: UPPER RESPIRATORY TRACT INFECTION
     Dosage: (ONCE), ORAL
     Route: 048
     Dates: start: 20040317, end: 20040317
  2. CEFMETAZOLE SODIUM (CEFMETAZOLE SODIUM) [Suspect]
     Indication: PYREXIA
     Dosage: 2 GRAM (BID), INTRAVENOUS
     Route: 042
     Dates: start: 20040318, end: 20040318
  3. CYPROHEPTADINE SODIUM (CYPROHEPTADINE SODIUM) [Concomitant]
  4. LYSOZYME (LYSOZYME) [Concomitant]

REACTIONS (5)
  - ACUTE GENERALISED EXANTHEMATOUS PUSTULOSIS [None]
  - CONJUNCTIVAL HYPERAEMIA [None]
  - LYMPHADENOPATHY [None]
  - NEUTROPHIL COUNT INCREASED [None]
  - PYREXIA [None]
